FAERS Safety Report 21812983 (Version 1)
Quarter: 2023Q1

REPORT INFORMATION
  Report Type: Spontaneous
  Country: US (occurrence: None)
  Receive Date: 20230102
  Receipt Date: 20230102
  Transmission Date: 20230418
  Serious: Yes (unspecified)
  Sender: FDA-Public Use
  Company Number: None

PATIENT
  Age: 37 Year
  Sex: Female
  Weight: 60.75 kg

DRUGS (1)
  1. ELURYNG [Suspect]
     Active Substance: ETHINYL ESTRADIOL\ETONOGESTREL
     Indication: Premenstrual dysphoric disorder
     Dosage: FREQUENCY : MONTHLY;?
     Route: 067
     Dates: start: 20221208, end: 20221222

REACTIONS (8)
  - Product substitution issue [None]
  - Swelling face [None]
  - Aggression [None]
  - Depression [None]
  - Suicidal ideation [None]
  - Depressed level of consciousness [None]
  - Loss of personal independence in daily activities [None]
  - Panic attack [None]

NARRATIVE: CASE EVENT DATE: 20221215
